FAERS Safety Report 7821574-4 (Version None)
Quarter: 2011Q4

REPORT INFORMATION
  Report Type: 
  Country: None (occurrence: None)
  Receive Date: 20111018
  Receipt Date: 20110407
  Transmission Date: 20120403
  Serious: No
  Sender: FDA-Public Use
  Company Number: US-ASTRAZENECA-2011SE19685

PATIENT
  Sex: Female

DRUGS (1)
  1. SYMBICORT [Suspect]
     Dosage: 160/4.5, 2 PUFFS
     Route: 055
     Dates: start: 20110331

REACTIONS (2)
  - DEVICE MISUSE [None]
  - INSOMNIA [None]
